FAERS Safety Report 5413336-2 (Version None)
Quarter: 2007Q3

REPORT INFORMATION
  Report Type: 
  Country: None (occurrence: None)
  Receive Date: 20070810
  Receipt Date: 20070725
  Transmission Date: 20080115
  Serious: Yes (Hospitalization)
  Sender: FDA-Public Use
  Company Number: 060004L07JPN

PATIENT
  Age: 31 Year
  Sex: Female

DRUGS (3)
  1. CLOMIPHENE CITRATE [Suspect]
  2. MENOTROPINS [Suspect]
  3. CHORIONIC GONADOTROPIN [Suspect]
     Dosage: 10000 IU

REACTIONS (2)
  - APLASIA PURE RED CELL [None]
  - OVARIAN HYPERSTIMULATION SYNDROME [None]
